FAERS Safety Report 7318635-5 (Version None)
Quarter: 2011Q1

REPORT INFORMATION
  Report Type: 
  Country: None (occurrence: None)
  Receive Date: 20110228
  Receipt Date: 20110221
  Transmission Date: 20110831
  Serious: Yes (Other)
  Sender: FDA-Public Use
  Company Number: US-B.I. PHARMACEUTICALS,INC./RIDGEFIELD-2011-BP-00429BP

PATIENT
  Sex: Male
  Weight: 77.56 kg

DRUGS (15)
  1. PRADAXA [Suspect]
     Indication: ANTICOAGULANT THERAPY
  2. TORSEMIDE [Concomitant]
     Indication: CARDIAC FAILURE CONGESTIVE
     Route: 048
  3. VITAMIN D [Concomitant]
  4. VITAMIN B-12 [Concomitant]
  5. BENAZEPRIL [Concomitant]
     Dosage: 40 MG
     Route: 048
     Dates: start: 20101209
  6. FISH OIL [Concomitant]
  7. CARVEDILOL [Suspect]
     Dosage: 12.5 MG
     Route: 048
     Dates: start: 20101207, end: 20101229
  8. CARVEDILOL [Suspect]
     Dosage: 12.5 MG
     Route: 048
     Dates: start: 20101230
  9. PRADAXA [Suspect]
     Indication: ATRIAL FIBRILLATION
     Dosage: 300 MG
     Route: 048
     Dates: start: 20101230, end: 20110131
  10. VITAMIN B COMPLEX CAP [Concomitant]
  11. DEMADEX [Concomitant]
     Dosage: 40 MG
     Route: 048
     Dates: start: 20101209
  12. ASCORBIC ACID [Concomitant]
  13. METAMUCIL-2 [Concomitant]
  14. PROBIOTIC [Concomitant]
  15. FOLIC ACID [Concomitant]

REACTIONS (1)
  - BLOOD GLUCOSE DECREASED [None]
